FAERS Safety Report 6085845-7 (Version None)
Quarter: 2009Q1

REPORT INFORMATION
  Report Type: 
  Country: None (occurrence: None)
  Receive Date: 20090217
  Receipt Date: 20090217
  Transmission Date: 20090719
  Serious: Yes (Other)
  Sender: FDA-Public Use
  Company Number: None

PATIENT
  Age: 36 Year
  Sex: Female
  Weight: 104.3273 kg

DRUGS (1)
  1. CYMBALTA [Suspect]
     Indication: FIBROMYALGIA
     Dates: start: 20070701, end: 20090201

REACTIONS (22)
  - ABNORMAL DREAMS [None]
  - ARTHRITIS [None]
  - C-REACTIVE PROTEIN INCREASED [None]
  - DIARRHOEA [None]
  - DISTURBANCE IN ATTENTION [None]
  - DRUG WITHDRAWAL SYNDROME [None]
  - DYSPAREUNIA [None]
  - DYSPNOEA [None]
  - HEADACHE [None]
  - HYPERCHOLESTEROLAEMIA [None]
  - HYPERHIDROSIS [None]
  - HYPERTENSION [None]
  - IRRITABLE BOWEL SYNDROME [None]
  - LOSS OF LIBIDO [None]
  - NIGHTMARE [None]
  - PALPITATIONS [None]
  - PARAESTHESIA [None]
  - RED BLOOD CELL SEDIMENTATION RATE INCREASED [None]
  - SOMNOLENCE [None]
  - TREMOR [None]
  - VISUAL IMPAIRMENT [None]
  - WEIGHT INCREASED [None]
